FAERS Safety Report 22766306 (Version 2)
Quarter: 2023Q4

REPORT INFORMATION
  Report Type: Spontaneous
  Country: FR (occurrence: FR)
  Receive Date: 20230731
  Receipt Date: 20231010
  Transmission Date: 20240110
  Serious: Yes (Other)
  Sender: FDA-Public Use
  Company Number: None

PATIENT
  Age: 62 Year
  Sex: Male

DRUGS (14)
  1. PIPERACILLIN SODIUM\TAZOBACTAM SODIUM [Suspect]
     Active Substance: PIPERACILLIN SODIUM\TAZOBACTAM SODIUM
     Indication: Septic shock
     Dosage: 16 G, 1X/DAY
     Route: 042
     Dates: start: 20220412, end: 20220413
  2. LINEZOLID [Suspect]
     Active Substance: LINEZOLID
     Indication: Septic shock
     Dosage: 1.2 G, 1X/DAY
     Route: 042
     Dates: start: 20220411, end: 20220413
  3. MEROPENEM [Suspect]
     Active Substance: MEROPENEM
     Indication: Septic shock
     Dosage: 6 G, 1X/DAY
     Route: 042
     Dates: start: 20220413, end: 20220414
  4. KETAMINE [Suspect]
     Active Substance: KETAMINE
     Dosage: 200 MG, SINGLE
     Route: 042
     Dates: start: 20220413, end: 20220413
  5. TRACRIUM [Suspect]
     Active Substance: ATRACURIUM BESYLATE
     Indication: Sedation
     Dosage: FREQ:1 H;
     Route: 042
     Dates: start: 20220413, end: 20220413
  6. CLONIDINE HYDROCHLORIDE [Suspect]
     Active Substance: CLONIDINE HYDROCHLORIDE
     Indication: Hypertension
     Dosage: 300 MG, 1X/DAY
     Route: 048
     Dates: start: 20220411
  7. BISOPROLOL FUMARATE [Suspect]
     Active Substance: BISOPROLOL FUMARATE
     Dosage: 2.5 MG, 1X/DAY
     Route: 048
     Dates: end: 20220413
  8. ALLOPURINOL [Suspect]
     Active Substance: ALLOPURINOL
     Indication: Gout
     Dosage: 200 MG, 1X/DAY
     Route: 048
     Dates: end: 20220411
  9. CASPOFUNGIN [Suspect]
     Active Substance: CASPOFUNGIN
     Indication: Systemic candida
     Dosage: 70 MG, 1X/DAY
     Route: 042
     Dates: start: 20220413, end: 20220420
  10. ATORVASTATIN [Suspect]
     Active Substance: ATORVASTATIN
     Indication: Dyslipidaemia
     Dosage: 40 MG, 1X/DAY
     Route: 048
     Dates: end: 20220416
  11. AUGMENTIN [Suspect]
     Active Substance: AMOXICILLIN\CLAVULANATE POTASSIUM
     Indication: Septic shock
     Dosage: 6 G, 1X/DAY
     Route: 042
     Dates: start: 202204, end: 20220417
  12. SUFENTANIL [Suspect]
     Active Substance: SUFENTANIL
     Indication: Sedation
     Dosage: FREQ:1 H;
     Route: 042
     Dates: start: 20220412
  13. ROCURONIUM BROMIDE [Suspect]
     Active Substance: ROCURONIUM BROMIDE
     Indication: Sedation
     Dosage: 1 DF, SINGLE
     Route: 042
     Dates: start: 20220413, end: 20220413
  14. MIDAZOLAM [Suspect]
     Active Substance: MIDAZOLAM
     Indication: Sedation
     Dosage: FREQ:1 H;
     Route: 042
     Dates: start: 20220412

REACTIONS (2)
  - Haemolytic anaemia [Not Recovered/Not Resolved]
  - Off label use [Unknown]

NARRATIVE: CASE EVENT DATE: 20220414
